FAERS Safety Report 9720828 (Version 1)
Quarter: 2013Q4

REPORT INFORMATION
  Report Type: Spontaneous
  Country: MX (occurrence: MX)
  Receive Date: 20131129
  Receipt Date: 20131129
  Transmission Date: 20140711
  Serious: Yes (Other)
  Sender: FDA-Public Use
  Company Number: MX-ROCHE-1310323

PATIENT
  Age: 63 Year
  Sex: 0

DRUGS (3)
  1. AVASTIN [Suspect]
     Indication: PRODUCT USED FOR UNKNOWN INDICATION
     Route: 065
     Dates: start: 20111128, end: 20120402
  2. DOCETAXEL [Concomitant]
     Route: 065
     Dates: start: 20111128, end: 20120402
  3. CARBOPLATIN [Concomitant]
     Route: 065
     Dates: start: 20111128, end: 20120402

REACTIONS (1)
  - Toxicity to various agents [Unknown]
